FAERS Safety Report 5192682-4 (Version None)
Quarter: 2006Q4

REPORT INFORMATION
  Report Type: 
  Country: None (occurrence: None)
  Receive Date: 20061220
  Receipt Date: 20061211
  Transmission Date: 20070319
  Serious: Yes (Hospitalization)
  Sender: FDA-Public Use
  Company Number: 15351

PATIENT
  Age: 38 Year
  Sex: Female

DRUGS (2)
  1. METHOTREXATE [Suspect]
     Indication: RHEUMATOID ARTHRITIS
     Dosage: 20 MG SC
     Route: 058
  2. REMICADE [Suspect]

REACTIONS (4)
  - DRUG HYPERSENSITIVITY [None]
  - DRUG INTERACTION [None]
  - HEART RATE INCREASED [None]
  - HYPOVENTILATION [None]
